FAERS Safety Report 21081561 (Version 1)
Quarter: 2022Q3

REPORT INFORMATION
  Report Type: Other
  Country: None (occurrence: CA)
  Receive Date: 20220714
  Receipt Date: 20220714
  Transmission Date: 20221027
  Serious: Yes (Other)
  Sender: FDA-Public Use
  Company Number: CA-Nuvo Pharmaceuticals Inc-2130853

PATIENT
  Age: 58 Year
  Sex: Female

DRUGS (5)
  1. SULFASALAZINE [Suspect]
     Active Substance: SULFASALAZINE
     Indication: Rheumatoid arthritis
     Route: 065
  2. ALLOPURINOL [Suspect]
     Active Substance: ALLOPURINOL
     Route: 065
  3. CEFTRIAXONE [Suspect]
     Active Substance: CEFTRIAXONE
     Route: 065
  4. ERTAPENEM. [Suspect]
     Active Substance: ERTAPENEM SODIUM
     Route: 065
  5. PENICILLIN V [Suspect]
     Active Substance: PENICILLIN V
     Route: 065

REACTIONS (2)
  - Lichenoid keratosis [Recovering/Resolving]
  - Granulomatous dermatitis [Recovering/Resolving]
